FAERS Safety Report 4663882-4 (Version None)
Quarter: 2005Q2

REPORT INFORMATION
  Report Type: 
  Country: None (occurrence: None)
  Receive Date: 20050516
  Receipt Date: 20050502
  Transmission Date: 20051028
  Serious: Yes (Hospitalization, Other)
  Sender: FDA-Public Use
  Company Number: 2005072131

PATIENT
  Sex: Female
  Weight: 68.0396 kg

DRUGS (2)
  1. CELEBREX [Suspect]
     Indication: ARTHRITIS
     Dosage: (100 MG, PRN INTERVAL:AS NEEDED), ORAL
     Route: 048
     Dates: start: 19990101
  2. ASPIRIN [Concomitant]

REACTIONS (10)
  - ABASIA [None]
  - ADVERSE EVENT [None]
  - BODY HEIGHT DECREASED [None]
  - FAECALOMA [None]
  - FLATULENCE [None]
  - IATROGENIC INJURY [None]
  - INAPPROPRIATE SCHEDULE OF DRUG ADMINISTRATION [None]
  - PAIN [None]
  - SCOLIOSIS [None]
  - SPLENIC RUPTURE [None]
